FAERS Safety Report 5912899-8 (Version None)
Quarter: 2008Q4

REPORT INFORMATION
  Report Type: 
  Country: None (occurrence: None)
  Receive Date: 20081008
  Receipt Date: 20080929
  Transmission Date: 20090506
  Serious: Yes (Hospitalization, Other)
  Sender: FDA-Public Use
  Company Number: CH-PFIZER INC-2008082334

PATIENT

DRUGS (1)
  1. GENOTROPIN [Suspect]

REACTIONS (1)
  - ADRENOCORTICAL INSUFFICIENCY ACUTE [None]
